FAERS Safety Report 12356926 (Version 9)
Quarter: 2017Q2

REPORT INFORMATION
  Report Type: Spontaneous
  Country: US (occurrence: US)
  Receive Date: 20160511
  Receipt Date: 20170606
  Transmission Date: 20170830
  Serious: No
  Sender: FDA-Public Use
  Company Number: US-PFIZER INC-2016246379

PATIENT
  Age: 44 Year
  Sex: Female

DRUGS (3)
  1. SUTENT [Suspect]
     Active Substance: SUNITINIB MALATE
     Dosage: 37.5 MG, CYCLIC (28 DAYS ON, 14 DAYS OFF)
     Route: 048
     Dates: start: 20160413
  2. SUTENT [Suspect]
     Active Substance: SUNITINIB MALATE
     Dosage: 50 MG, CYCLIC (DAILY 28 DAYS ON, 14 DAYS OFF)
     Route: 048
     Dates: start: 20160531
  3. SUTENT [Suspect]
     Active Substance: SUNITINIB MALATE
     Indication: THYROID CANCER
     Dosage: 50 MG, CYCLIC (DAILY 28 DAYS ON, 14 DAYS OFF)
     Route: 048
     Dates: start: 20160412

REACTIONS (12)
  - White blood cell count decreased [Unknown]
  - Libido increased [Unknown]
  - Feeling abnormal [Unknown]
  - Anosmia [Unknown]
  - Vaginal discharge [Unknown]
  - Fatigue [Unknown]
  - Memory impairment [Unknown]
  - Rash macular [Unknown]
  - Increased viscosity of bronchial secretion [Unknown]
  - Product use in unapproved indication [Unknown]
  - Flushing [Unknown]
  - Skin discolouration [Unknown]

NARRATIVE: CASE EVENT DATE: 20160502
